FAERS Safety Report 15710979 (Version 1)
Quarter: 2018Q4

REPORT INFORMATION
  Report Type: Spontaneous
  Country: US (occurrence: US)
  Receive Date: 20181211
  Receipt Date: 20181211
  Transmission Date: 20190205
  Serious: No
  Sender: FDA-Public Use
  Company Number: US-PERNIX THERAPEUTICS-US-2018PER001710

PATIENT
  Age: 64 Year
  Sex: Male

DRUGS (1)
  1. ZOHYDRO [Suspect]
     Active Substance: HYDROCODONE BITARTRATE
     Indication: PAIN
     Dosage: 30 MG, BID
     Route: 048
     Dates: start: 2016

REACTIONS (3)
  - Joint swelling [Unknown]
  - Burning sensation [Unknown]
  - Arthralgia [Unknown]
